FAERS Safety Report 15593911 (Version 4)
Quarter: 2018Q4

REPORT INFORMATION
  Report Type: Report from Study
  Country: FR (occurrence: FR)
  Receive Date: 20181107
  Receipt Date: 20181127
  Transmission Date: 20190205
  Serious: Yes (Death, Hospitalization, Other)
  Sender: FDA-Public Use
  Company Number: FR-TESAROUBC-2018-TSO1610-FR

PATIENT
  Age: 82 Year
  Sex: Male
  Weight: 75 kg

DRUGS (1)
  1. NIRAPARIB [Suspect]
     Active Substance: NIRAPARIB
     Indication: PROSTATE CANCER METASTATIC
     Dosage: 100 MG, QD
     Route: 048
     Dates: start: 20180802, end: 20180922

REACTIONS (4)
  - Anaemia [Recovering/Resolving]
  - Sepsis [Recovered/Resolved]
  - Cardiac failure [Fatal]
  - Performance status decreased [Fatal]

NARRATIVE: CASE EVENT DATE: 20180923
